FAERS Safety Report 5335088-7 (Version None)
Quarter: 2007Q2

REPORT INFORMATION
  Report Type: 
  Country: None (occurrence: None)
  Receive Date: 20070525
  Receipt Date: 20070522
  Transmission Date: 20071010
  Serious: Yes (Hospitalization)
  Sender: FDA-Public Use
  Company Number: US-BOEHRINGER INGELHEIM PHARMACEUTICALS, INC.-2007-BP-07014BP

PATIENT
  Age: 57 Year
  Sex: Female

DRUGS (4)
  1. SPIRIVA [Suspect]
     Indication: CHRONIC OBSTRUCTIVE PULMONARY DISEASE
     Route: 055
     Dates: start: 20060201
  2. SINGULAIR [Concomitant]
  3. ALBUTEROL [Concomitant]
  4. PHENOBARBITAL TAB [Concomitant]

REACTIONS (1)
  - DYSPNOEA [None]
